FAERS Safety Report 6061987-7 (Version None)
Quarter: 2009Q1

REPORT INFORMATION
  Report Type: 
  Country: None (occurrence: None)
  Receive Date: 20090202
  Receipt Date: 20090127
  Transmission Date: 20090719
  Serious: No
  Sender: FDA-Public Use
  Company Number: US-B.I. PHARMACEUTICALS,INC./RIDGEFIELD-2009-BP-00986BP

PATIENT
  Sex: Male

DRUGS (11)
  1. COMBIVENT [Suspect]
     Indication: CHRONIC OBSTRUCTIVE PULMONARY DISEASE
     Dosage: 8PUF
     Route: 055
     Dates: start: 20081229
  2. DIAZEPAM [Concomitant]
     Indication: INSOMNIA
  3. ETODOLAC [Concomitant]
     Indication: RHEUMATOID ARTHRITIS
  4. PLAQUENIL [Concomitant]
     Indication: RHEUMATOID ARTHRITIS
  5. LOVASTATIN [Concomitant]
     Indication: BLOOD CHOLESTEROL INCREASED
  6. NEXIUM [Concomitant]
     Indication: GASTROOESOPHAGEAL REFLUX DISEASE
  7. FOLBIC [Concomitant]
     Indication: ANAEMIA
  8. LISINOPRIL [Concomitant]
     Indication: BLOOD PRESSURE INCREASED
  9. CLARINEX [Concomitant]
     Indication: HYPERSENSITIVITY
  10. ATENOLOL [Concomitant]
     Indication: HYPERTENSION
  11. LEVOTHYROXINE SODIUM [Concomitant]
     Indication: HYPOTHYROIDISM

REACTIONS (2)
  - COUGH [None]
  - WHEEZING [None]
